FAERS Safety Report 24246718 (Version 2)
Quarter: 2024Q3

REPORT INFORMATION
  Report Type: Report from Study
  Country: TW (occurrence: TW)
  Receive Date: 20240826
  Receipt Date: 20240902
  Transmission Date: 20241017
  Serious: Yes (Other)
  Sender: BOEHRINGER INGELHEIM
  Company Number: TW-BoehringerIngelheim-2024-BI-047452

PATIENT
  Age: 48 Year
  Sex: Female
  Weight: 45 kg

DRUGS (1)
  1. OFEV [Suspect]
     Active Substance: NINTEDANIB
     Indication: Systemic sclerosis pulmonary
     Route: 048
     Dates: start: 20210101

REACTIONS (3)
  - Intestinal obstruction [Not Recovered/Not Resolved]
  - Gastrooesophageal reflux disease [Not Recovered/Not Resolved]
  - Abdominal distension [Not Recovered/Not Resolved]

NARRATIVE: CASE EVENT DATE: 20240807
